FAERS Safety Report 13906077 (Version 1)
Quarter: 2017Q3

REPORT INFORMATION
  Report Type: Spontaneous
  Country: BR (occurrence: BR)
  Receive Date: 20170825
  Receipt Date: 20170825
  Transmission Date: 20171127
  Serious: Yes (Hospitalization, Other)
  Sender: FDA-Public Use
  Company Number: BR-MYLANLABS-2017M1052555

PATIENT

DRUGS (5)
  1. SILDENAFIL. [Interacting]
     Active Substance: SILDENAFIL
     Indication: PULMONARY HYPERTENSION
     Route: 065
  2. TACROLIMUS. [Interacting]
     Active Substance: TACROLIMUS
     Indication: IMMUNOSUPPRESSANT DRUG THERAPY
     Dosage: 1MG EVERY 12HOUR
     Route: 065
  3. WARFARIN [Interacting]
     Active Substance: WARFARIN
     Indication: PULMONARY EMBOLISM
     Route: 065
  4. PREDNISONE. [Suspect]
     Active Substance: PREDNISONE
     Indication: IMMUNOSUPPRESSANT DRUG THERAPY
     Dosage: IN MORNING
     Route: 065
  5. ITRACONAZOLE. [Interacting]
     Active Substance: ITRACONAZOLE
     Indication: SPOROTRICHOSIS
     Dosage: UNK

REACTIONS (7)
  - Cutaneous sporotrichosis [Recovering/Resolving]
  - Sporotrichosis [Recovering/Resolving]
  - Gait disturbance [Recovering/Resolving]
  - Respiratory tract infection fungal [Recovering/Resolving]
  - Drug interaction [Recovering/Resolving]
  - Drug level increased [Recovering/Resolving]
  - Arthralgia [Recovering/Resolving]
